FAERS Safety Report 16530913 (Version 1)
Quarter: 2019Q3

REPORT INFORMATION
  Report Type: Spontaneous
  Country: US (occurrence: US)
  Receive Date: 20190704
  Receipt Date: 20190704
  Transmission Date: 20191004
  Serious: Yes (Other)
  Sender: FDA-Public Use
  Company Number: US-ASTRAZENECA-2019SE95633

PATIENT
  Age: 57 Year
  Weight: 49.9 kg

DRUGS (2)
  1. SYMBICORT [Suspect]
     Active Substance: BUDESONIDE\FORMOTEROL FUMARATE DIHYDRATE
     Indication: EMPHYSEMA
     Dosage: 160/4.5 MCG., 2 PUFFS TWICE A DAY
     Route: 055
     Dates: start: 2009
  2. SYMBICORT [Suspect]
     Active Substance: BUDESONIDE\FORMOTEROL FUMARATE DIHYDRATE
     Indication: CHRONIC OBSTRUCTIVE PULMONARY DISEASE
     Dosage: 160/4.5 MCG., 2 PUFFS TWICE A DAY
     Route: 055
     Dates: start: 2009

REACTIONS (9)
  - Dyspnoea [Unknown]
  - Body height decreased [Unknown]
  - Palpitations [Unknown]
  - Product dose omission [Unknown]
  - Weight decreased [Unknown]
  - Amnesia [Unknown]
  - Fall [Unknown]
  - Transient ischaemic attack [Unknown]
  - Seizure [Unknown]

NARRATIVE: CASE EVENT DATE: 2011
